FAERS Safety Report 8829388 (Version 1)
Quarter: 2012Q4

REPORT INFORMATION
  Report Type: 
  Country: US (occurrence: US)
  Receive Date: 20121008
  Receipt Date: 20121008
  Transmission Date: 20130627
  Serious: Yes (Other)
  Sender: FDA-Public Use
  Company Number: US-PFIZER INC-2012244216

PATIENT
  Age: 41 Year
  Sex: Female
  Weight: 58.5 kg

DRUGS (8)
  1. LYRICA [Suspect]
     Indication: FIBROMYALGIA
     Dosage: 100 mg, 3x/day
     Route: 048
     Dates: start: 201109, end: 201209
  2. LYRICA [Suspect]
     Indication: PAIN
     Dosage: UNK
     Dates: start: 201209
  3. FERROUS SULFATE [Concomitant]
     Indication: ANAEMIA
     Dosage: UNK
  4. ZOLOFT [Concomitant]
     Dosage: UNK
  5. TRAMADOL [Concomitant]
     Dosage: UNK
  6. NAPROXEN [Concomitant]
     Dosage: UNK
  7. FLEXERIL [Concomitant]
     Dosage: UNK, as needed
  8. IBUPROFEN [Concomitant]
     Dosage: 800 mg, UNK

REACTIONS (19)
  - Activities of daily living impaired [Unknown]
  - Fall [Unknown]
  - Dyspnoea [Unknown]
  - Drug withdrawal syndrome [Unknown]
  - Insomnia [Unknown]
  - Nausea [Unknown]
  - Headache [Unknown]
  - Anxiety [Unknown]
  - Hyperhidrosis [Unknown]
  - Diarrhoea [Unknown]
  - Chest discomfort [Unknown]
  - Facial pain [Unknown]
  - Panic attack [Unknown]
  - Depression [Unknown]
  - Feeling abnormal [Unknown]
  - Feeling jittery [Unknown]
  - Balance disorder [Unknown]
  - Crying [Unknown]
  - Drug ineffective [Unknown]
